FAERS Safety Report 11540512 (Version 1)
Quarter: 2015Q3

REPORT INFORMATION
  Report Type: Spontaneous
  Country: US (occurrence: US)
  Receive Date: 20150923
  Receipt Date: 20150923
  Transmission Date: 20151125
  Serious: No
  Sender: FDA-Public Use
  Company Number: US-BEH-2015048668

PATIENT
  Sex: Male
  Weight: 79 kg

DRUGS (21)
  1. LASIX [Concomitant]
     Active Substance: FUROSEMIDE
  2. CHLORPHENIRAMINE. [Concomitant]
     Active Substance: CHLORPHENIRAMINE
  3. COREG [Concomitant]
     Active Substance: CARVEDILOL
  4. ALDACTONE [Concomitant]
     Active Substance: SPIRONOLACTONE
  5. PRIVIGEN [Suspect]
     Active Substance: HUMAN IMMUNOGLOBULIN G
     Dosage: 20 GM VIAL;400 MG/KG
     Route: 042
  6. ACETAMINOPHEN. [Concomitant]
     Active Substance: ACETAMINOPHEN
  7. NOVOLOG [Concomitant]
     Active Substance: INSULIN ASPART
  8. EPIPEN [Concomitant]
     Active Substance: EPINEPHRINE
  9. LMX [Concomitant]
     Active Substance: LIDOCAINE
  10. ZOLPIDEM [Concomitant]
     Active Substance: ZOLPIDEM\ZOLPIDEM TARTRATE
  11. PRIVIGEN [Suspect]
     Active Substance: HUMAN IMMUNOGLOBULIN G
     Indication: CHRONIC INFLAMMATORY DEMYELINATING POLYRADICULONEUROPATHY
     Dosage: 10 GM VIAL;400 MG/KG AS DIRECTED;26JAN2015 TO 15-FEB2015
     Route: 042
  12. WARFARIN [Concomitant]
     Active Substance: WARFARIN
  13. VITAMIN B12 [Concomitant]
     Active Substance: CYANOCOBALAMIN
  14. HEPARIN [Concomitant]
     Active Substance: HEPARIN SODIUM
  15. LANTUS [Concomitant]
     Active Substance: INSULIN GLARGINE
  16. SODIUM CHLORIDE. [Concomitant]
     Active Substance: SODIUM CHLORIDE
  17. AMIODARONE [Concomitant]
     Active Substance: AMIODARONE
  18. DIPHENHYDRAMINE. [Concomitant]
     Active Substance: DIPHENHYDRAMINE
  19. LOSARTAN. [Concomitant]
     Active Substance: LOSARTAN
  20. VENTOLIN [Concomitant]
     Active Substance: ALBUTEROL SULFATE
  21. ASPIRIN. [Concomitant]
     Active Substance: ASPIRIN

REACTIONS (2)
  - Muscular weakness [Unknown]
  - Flushing [Recovered/Resolved]
